FAERS Safety Report 6242240 (Version 2)
Quarter: 2020Q3

REPORT INFORMATION
  Report Type: Spontaneous
  Country: DE (occurrence: DE)
  Receive Date: 20070221
  Receipt Date: 20070426
  Transmission Date: 20201104
  Serious: Yes (Other)
  Sender: FDA-Public Use
  Company Number: DE-ROCHE-482539

PATIENT
  Age: 77 Year
  Sex: Female
  Weight: 70 kg

DRUGS (5)
  1. IBANDRONIC ACID. [Suspect]
     Active Substance: IBANDRONIC ACID
     Indication: OSTEOPOROSIS
     Dosage: PATIENT HAD BEEN TAKING IBANDRONIC ACID SINCE ONE YEAR
     Route: 048
  2. THIAMAZOL [Concomitant]
     Route: 048
     Dates: start: 20040615
  3. MARCUMAR [Suspect]
     Active Substance: PHENPROCOUMON
     Route: 048
     Dates: start: 20000615
  4. VERAPAMIL HYDROCHLORIDE. [Concomitant]
     Active Substance: VERAPAMIL HYDROCHLORIDE
     Route: 048
     Dates: start: 19980615
  5. NOVALGIN (METAMIZOLE SODIUM) [Concomitant]
     Active Substance: METAMIZOLE SODIUM
     Route: 048
     Dates: start: 20050615

REACTIONS (3)
  - Rectal haemorrhage [None]
  - Nausea [None]
  - Diarrhoea [Recovering/Resolving]

NARRATIVE: CASE EVENT DATE: 20070205
